FAERS Safety Report 6140444-3 (Version None)
Quarter: 2009Q1

REPORT INFORMATION
  Report Type: 
  Country: None (occurrence: None)
  Receive Date: 20090331
  Receipt Date: 20090318
  Transmission Date: 20090719
  Serious: Yes (Hospitalization, Other)
  Sender: FDA-Public Use
  Company Number: 233992J08USA

PATIENT
  Age: 38 Year
  Sex: Female
  Weight: 61 kg

DRUGS (8)
  1. REBIF [Suspect]
     Indication: MULTIPLE SCLEROSIS
     Dosage: 44 MCG, 3 IN 1 WEEKS, SUBCUTANEOUS
     Route: 058
     Dates: start: 20080327
  2. INSULIN [Concomitant]
  3. NOVOLOG INSULIN (INSULIN ASPART) [Concomitant]
  4. BACLOFEN [Concomitant]
  5. INTRAVENOUS STEROID(CORTICOSTEROID NOS) [Concomitant]
  6. TYLENOL(COTYLENOL) [Concomitant]
  7. NEURONTIN [Concomitant]
  8. TYLENOL(COTYLENOL) [Concomitant]

REACTIONS (10)
  - BLOOD GLUCOSE DECREASED [None]
  - COMA [None]
  - CONDITION AGGRAVATED [None]
  - DIABETES MELLITUS [None]
  - DIABETIC KETOACIDOSIS [None]
  - LIVER FUNCTION TEST ABNORMAL [None]
  - MULTIPLE SCLEROSIS [None]
  - RED BLOOD CELL COUNT DECREASED [None]
  - STAPHYLOCOCCAL INFECTION [None]
  - WHITE BLOOD CELL COUNT DECREASED [None]
